FAERS Safety Report 24101642 (Version 1)
Quarter: 2024Q3

REPORT INFORMATION
  Report Type: Report from Study
  Country: US (occurrence: None)
  Receive Date: 20240717
  Receipt Date: 20240717
  Transmission Date: 20241016
  Serious: Yes (Other)
  Sender: ASTRAZENECA
  Company Number: 2020SE25628

PATIENT
  Sex: Female

DRUGS (2)
  1. LYNPARZA [Suspect]
     Active Substance: OLAPARIB
     Indication: Ovarian cancer
     Route: 048
     Dates: start: 20200208
  2. LYNPARZA [Suspect]
     Active Substance: OLAPARIB
     Indication: Ovarian cancer
     Dosage: UNKNOWN
     Route: 048
     Dates: start: 20200219

REACTIONS (6)
  - Fall [Unknown]
  - Post procedural complication [Unknown]
  - Vomiting [Unknown]
  - Cystitis [Unknown]
  - Blood glucose increased [Unknown]
  - Fatigue [Unknown]
